FAERS Safety Report 6241340-3 (Version None)
Quarter: 2009Q2

REPORT INFORMATION
  Report Type: 
  Country: None (occurrence: None)
  Receive Date: 20090623
  Receipt Date: 20090618
  Transmission Date: 20091009
  Serious: Yes (Hospitalization)
  Sender: FDA-Public Use
  Company Number: TR-GILEAD-2009-0021990

PATIENT
  Sex: Female

DRUGS (5)
  1. VIREAD [Suspect]
     Indication: HEPATITIS B
     Route: 048
     Dates: end: 20090514
  2. VIREAD [Suspect]
     Route: 048
     Dates: start: 20090323, end: 20090503
  3. CLEXAN [Concomitant]
     Route: 048
     Dates: start: 20090201
  4. METOPROLOL TARTRATE [Concomitant]
     Route: 048
     Dates: start: 20090202
  5. PHENYTOIN SODIUM CAP [Concomitant]
     Dates: start: 20090202

REACTIONS (1)
  - EPILEPSY [None]
